FAERS Safety Report 5141300-X (Version None)
Quarter: 2006Q4

REPORT INFORMATION
  Report Type: 
  Country: None (occurrence: None)
  Receive Date: 20061101
  Receipt Date: 20050922
  Transmission Date: 20070319
  Serious: Yes (Hospitalization)
  Sender: FDA-Public Use
  Company Number: DE-ROCHE-418550

PATIENT
  Age: 48 Year
  Sex: Male
  Weight: 85 kg

DRUGS (6)
  1. PEG-INTERFERON ALFA 2A (RO 25-8310) [Suspect]
     Route: 058
     Dates: start: 20040715, end: 20040930
  2. PEG-INTERFERON ALFA 2A (RO 25-8310) [Suspect]
     Route: 058
     Dates: start: 20041007, end: 20051031
  3. RIBAVIRIN [Suspect]
     Route: 048
     Dates: start: 20040715, end: 20050910
  4. RIBAVIRIN [Suspect]
     Route: 048
     Dates: start: 20050913, end: 20051108
  5. BISOPROLOL FUMARATE [Concomitant]
  6. PANTOZOL [Concomitant]
     Dates: start: 20051005

REACTIONS (3)
  - CHOLECYSTITIS ACUTE [None]
  - GASTRITIS [None]
  - PYREXIA [None]
